FAERS Safety Report 7934200-0 (Version None)
Quarter: 2011Q4

REPORT INFORMATION
  Report Type: 
  Country: None (occurrence: None)
  Receive Date: 20111122
  Receipt Date: 20111117
  Transmission Date: 20120403
  Serious: Yes (Other)
  Sender: FDA-Public Use
  Company Number: US-PFIZER INC-2011282330

PATIENT
  Sex: Female
  Weight: 71.2 kg

DRUGS (13)
  1. MORPHINE SULFATE [Suspect]
     Indication: PAIN
     Dosage: 40 MG, 1X/DAY
  2. ZOLOFT [Concomitant]
     Indication: DEPRESSION
  3. VITAMIN E [Concomitant]
     Indication: OSTEOPOROSIS
     Dosage: UNK
  4. CALCIUM [Concomitant]
     Indication: OSTEOPOROSIS
     Dosage: 1200 MG, 1X/DAY
  5. LEVOTHYROXINE SODIUM [Suspect]
     Indication: THYROID DISORDER
     Dosage: 1.25 UG, 1X/DAY
  6. ZOLOFT [Concomitant]
     Indication: SLEEP DISORDER
     Dosage: 25 MG, 1X/DAY
  7. VITAMIN B-12 [Concomitant]
     Indication: OSTEOPOROSIS
     Dosage: UNK
  8. HYDROCHLOROTHIAZIDE [Concomitant]
     Indication: HYPERTENSION
     Dosage: 25 MG, 2X/DAY
  9. VITAMIN D [Concomitant]
     Indication: OSTEOPOROSIS
     Dosage: 1000 IU, 1X/DAY
  10. LYRICA [Suspect]
     Indication: INTERVERTEBRAL DISC DEGENERATION
  11. ZOLEDRONIC ACID [Concomitant]
     Dosage: YEARLY
  12. LYRICA [Suspect]
     Indication: FIBROMYALGIA
     Dosage: 100 MG, 3X/DAY
     Route: 048
  13. LIPITOR [Concomitant]
     Indication: BLOOD CHOLESTEROL INCREASED
     Dosage: 10 MG, 1X/DAY
     Dates: start: 20110101

REACTIONS (4)
  - IMPAIRED DRIVING ABILITY [None]
  - VISION BLURRED [None]
  - VISUAL ACUITY REDUCED [None]
  - CHROMATOPSIA [None]
